FAERS Safety Report 6135101-3 (Version None)
Quarter: 2009Q1

REPORT INFORMATION
  Report Type: 
  Country: None (occurrence: None)
  Receive Date: 20090325
  Receipt Date: 20090308
  Transmission Date: 20090719
  Serious: Yes (Other)
  Sender: FDA-Public Use
  Company Number: 2007S1003175

PATIENT
  Age: 53 Year
  Sex: Female
  Weight: 110.2241 kg

DRUGS (6)
  1. PHOSPHOSODA FLAVOR NOT SPECIFIED [Suspect]
     Indication: COLONOSCOPY
     Dosage: PO
     Route: 048
     Dates: start: 20060313, end: 20060313
  2. VYTORIN [Concomitant]
  3. ASPIRIN [Concomitant]
  4. AVALIDE [Concomitant]
  5. ANUSOL [Concomitant]
  6. AVAPRO [Concomitant]

REACTIONS (4)
  - MALIGNANT HYPERTENSION [None]
  - OEDEMA [None]
  - RENAL FAILURE ACUTE [None]
  - TUBULOINTERSTITIAL NEPHRITIS [None]
